FAERS Safety Report 6284276-4 (Version None)
Quarter: 2009Q3

REPORT INFORMATION
  Report Type: 
  Country: None (occurrence: None)
  Receive Date: 20090727
  Receipt Date: 20090722
  Transmission Date: 20100115
  Serious: Yes (Hospitalization)
  Sender: FDA-Public Use
  Company Number: CA-ALLERGAN-0901030US

PATIENT
  Age: 20 Year
  Sex: Female

DRUGS (2)
  1. BOTOX [Suspect]
     Indication: FACIAL SPASM
     Route: 030
  2. BOTOX [Suspect]
     Dosage: UNK, UNK
     Dates: start: 20081003, end: 20081003

REACTIONS (2)
  - EYELID OEDEMA [None]
  - LIP SWELLING [None]
